FAERS Safety Report 14527692 (Version 3)
Quarter: 2018Q3

REPORT INFORMATION
  Report Type: Spontaneous
  Country: US (occurrence: US)
  Receive Date: 20180213
  Receipt Date: 20180718
  Transmission Date: 20181010
  Serious: No
  Sender: FDA-Public Use
  Company Number: US-LUNDBECK-DKLU2040914

PATIENT
  Age: 70 Year
  Sex: Female

DRUGS (6)
  1. NORTHERA [Suspect]
     Active Substance: DROXIDOPA
     Route: 065
  2. NORTHERA [Suspect]
     Active Substance: DROXIDOPA
     Indication: SYNCOPE
     Dosage: SCHEDULE B / TITRATING
     Route: 065
     Dates: start: 20171122
  3. NORTHERA [Suspect]
     Active Substance: DROXIDOPA
     Indication: AUTONOMIC NEUROPATHY
     Route: 065
     Dates: start: 20171203, end: 20171203
  4. NORTHERA [Suspect]
     Active Substance: DROXIDOPA
     Route: 065
  5. NORTHERA [Suspect]
     Active Substance: DROXIDOPA
     Route: 065
     Dates: start: 201712
  6. NORTHERA [Suspect]
     Active Substance: DROXIDOPA
     Indication: ORTHOSTATIC HYPOTENSION
     Route: 065
     Dates: start: 20171204

REACTIONS (2)
  - Headache [Unknown]
  - Blood pressure increased [Unknown]

NARRATIVE: CASE EVENT DATE: 20171122
